FAERS Safety Report 5653694-7 (Version None)
Quarter: 2008Q1

REPORT INFORMATION
  Report Type: 
  Country: None (occurrence: None)
  Receive Date: 20080131
  Receipt Date: 20071002
  Transmission Date: 20080703
  Serious: No
  Sender: FDA-Public Use
  Company Number: US200710000805

PATIENT
  Age: 41 Year
  Sex: Female

DRUGS (8)
  1. BYETTA [Suspect]
  2. CYMBALTA [Concomitant]
  3. AUGMENTIN /00756801/ (AMOXICILLIN SODIUM, CLAVULANATE POTASSIUM) [Concomitant]
  4. PREDNISONE TAB [Concomitant]
  5. MORPHINE [Concomitant]
  6. ADVAIR DISKUS 100/50 [Concomitant]
  7. FLOVENT [Concomitant]
  8. AMBIEN [Concomitant]

REACTIONS (5)
  - BRONCHITIS [None]
  - ERYTHEMA [None]
  - PALPITATIONS [None]
  - PRURITUS [None]
  - SWELLING FACE [None]
